FAERS Safety Report 6036481-X (Version None)
Quarter: 2009Q1

REPORT INFORMATION
  Report Type: 
  Country: None (occurrence: None)
  Receive Date: 20090112
  Receipt Date: 20081230
  Transmission Date: 20090719
  Serious: Yes (Hospitalization)
  Sender: FDA-Public Use
  Company Number: 08-002053

PATIENT
  Age: 74 Year
  Sex: Male

DRUGS (3)
  1. DORYX [Suspect]
     Indication: COLLAPSE OF LUNG
     Dosage: 100 MG, ORAL
     Route: 048
     Dates: start: 20080627, end: 20080627
  2. AMLODIPINE [Concomitant]
  3. RIKODEINE (DIHYDROCODEINE BITARTRATE) [Concomitant]

REACTIONS (4)
  - ERYTHEMA [None]
  - PARAESTHESIA [None]
  - SKIN WARM [None]
  - URTICARIA [None]
